FAERS Safety Report 25023510 (Version 1)
Quarter: 2025Q1

REPORT INFORMATION
  Report Type: Spontaneous
  Country: US (occurrence: None)
  Receive Date: 20250227
  Receipt Date: 20250227
  Transmission Date: 20250408
  Serious: No
  Sender: FDA-CTU
  Company Number: None

PATIENT
  Age: 57 Year
  Sex: Female

DRUGS (13)
  1. SKYRIZI [Suspect]
     Active Substance: RISANKIZUMAB-RZAA
     Indication: Psoriasis
     Dosage: OTHER FREQUENCY : EVERY 12 WEEKS;?
     Route: 058
     Dates: start: 20240627
  2. hydroxyzine 50mg [Concomitant]
  3. TRAZODONE [Concomitant]
     Active Substance: TRAZODONE HYDROCHLORIDE
     Dates: start: 20240626
  4. fluocinonide 0.05% soln [Concomitant]
     Dates: start: 20240626
  5. quetiapine er 150mg [Concomitant]
     Dates: start: 20240626
  6. CLOBETASOL PROPIONATE [Concomitant]
     Active Substance: CLOBETASOL PROPIONATE
     Dates: start: 20240626
  7. OMEPRAZOLE [Concomitant]
     Active Substance: OMEPRAZOLE
     Dates: start: 20240626
  8. SINGULAIR [Concomitant]
     Active Substance: MONTELUKAST SODIUM
     Dates: start: 20240626
  9. GABAPENTIN [Concomitant]
     Active Substance: GABAPENTIN
     Dates: start: 20240626
  10. METFORMIN [Concomitant]
     Active Substance: METFORMIN HYDROCHLORIDE
     Dates: start: 20240626
  11. TEMAZEPAM [Concomitant]
     Active Substance: TEMAZEPAM
     Dates: start: 20240626
  12. PREDNISONE [Concomitant]
     Active Substance: PREDNISONE
     Dates: start: 20240626
  13. BACLOFEN [Concomitant]
     Active Substance: BACLOFEN
     Dates: start: 20240626

REACTIONS (5)
  - Drug ineffective [None]
  - Dry skin [None]
  - Skin fissures [None]
  - Bone pain [None]
  - Myalgia [None]

NARRATIVE: CASE EVENT DATE: 20240627
